FAERS Safety Report 20854584 (Version 1)
Quarter: 2022Q2

REPORT INFORMATION
  Report Type: Spontaneous
  Country: DK (occurrence: DK)
  Receive Date: 20220520
  Receipt Date: 20220520
  Transmission Date: 20220720
  Serious: Yes (Death, Other)
  Sender: FDA-Public Use
  Company Number: None

PATIENT
  Age: 35 Year
  Sex: Female
  Weight: 46 kg

DRUGS (8)
  1. CLOZAPINE [Suspect]
     Active Substance: CLOZAPINE
     Indication: Mental disorder
     Dosage: 100 MILLIGRAM, MORNING, 100 MG MIDDAY AND 400 MG NIGHT.
     Route: 048
     Dates: start: 20210607
  2. CLOZAPINE [Suspect]
     Active Substance: CLOZAPINE
     Indication: Schizophrenia
     Dosage: ADMINISTERED AT NIGHT
     Route: 048
     Dates: start: 20210608
  3. BISACODYL [Concomitant]
     Active Substance: BISACODYL
     Indication: Product used for unknown indication
     Dosage: UNK
     Dates: start: 202110, end: 202110
  4. OXAZEPAM [Concomitant]
     Active Substance: OXAZEPAM
     Indication: Product used for unknown indication
     Dosage: UNK
  5. PARACETAMOL ORIFARM [Concomitant]
     Indication: Pain
     Dosage: UNK
     Dates: start: 20190321
  6. OLANZAPINE [Concomitant]
     Active Substance: OLANZAPINE
     Indication: Mental disorder
     Dosage: UNK
     Dates: start: 20210225
  7. RIVOTRIL [Concomitant]
     Active Substance: CLONAZEPAM
     Indication: Sedative therapy
     Dosage: UNK
     Dates: start: 20200519
  8. MORPHINE [Concomitant]
     Active Substance: MORPHINE
     Indication: Product used for unknown indication
     Dosage: UNK

REACTIONS (5)
  - Cardiac arrest [Fatal]
  - Arrhythmia [Fatal]
  - Respiratory failure [Unknown]
  - Torsade de pointes [Unknown]
  - Dyspnoea [Unknown]

NARRATIVE: CASE EVENT DATE: 20211029
